FAERS Safety Report 6496251-5 (Version None)
Quarter: 2009Q4

REPORT INFORMATION
  Report Type: 
  Country: None (occurrence: None)
  Receive Date: 20091214
  Receipt Date: 20090109
  Transmission Date: 20100525
  Serious: No
  Sender: FDA-Public Use
  Company Number: US-BRISTOL-MYERS SQUIBB COMPANY-14466825

PATIENT
  Age: 28 Year
  Sex: Female

DRUGS (1)
  1. ABILIFY [Suspect]
     Indication: SCHIZOPHRENIA
     Dosage: TAKN FOR 1.5 YRS. DISCONT + RESTARTD:5MG/D,1 MONTH PRIOR TO DELIVERY;7JAN09(INJ)

REACTIONS (2)
  - NORMAL NEWBORN [None]
  - PREGNANCY [None]
